FAERS Safety Report 5413975-9 (Version None)
Quarter: 2007Q3

REPORT INFORMATION
  Report Type: 
  Country: None (occurrence: None)
  Receive Date: 20070814
  Receipt Date: 20070802
  Transmission Date: 20080115
  Serious: Yes (Hospitalization, Other)
  Sender: FDA-Public Use
  Company Number: US-ELI_LILLY_AND_COMPANY-US200708000645

PATIENT
  Age: 57 Year
  Sex: Female

DRUGS (2)
  1. FORTEO [Suspect]
     Indication: OSTEOPOROSIS
     Dates: end: 20070701
  2. PREDNISONE TAB [Concomitant]
     Dosage: 2 MG, DAILY (1/D)

REACTIONS (4)
  - ARRHYTHMIA [None]
  - GASTROINTESTINAL DISORDER [None]
  - NAUSEA [None]
  - VOMITING [None]
